FAERS Safety Report 21330281 (Version 2)
Quarter: 2022Q4

REPORT INFORMATION
  Report Type: Spontaneous
  Country: US (occurrence: US)
  Receive Date: 20220913
  Receipt Date: 20221116
  Transmission Date: 20230112
  Serious: Yes (Hospitalization, Other)
  Sender: FDA-Public Use
  Company Number: US-ELI_LILLY_AND_COMPANY-US202209001222

PATIENT
  Age: 71 Year
  Sex: Female

DRUGS (3)
  1. BASAGLAR [Suspect]
     Active Substance: INSULIN GLARGINE
     Indication: Diabetes mellitus
     Dosage: 40 U, UNKNOWN
     Route: 065
     Dates: start: 20220826
  2. METFORMIN [Concomitant]
     Active Substance: METFORMIN HYDROCHLORIDE
     Indication: Product used for unknown indication
     Dosage: UNK UNK, UNKNOWN
     Dates: end: 20220831
  3. GLIMEPIRIDE [Concomitant]
     Active Substance: GLIMEPIRIDE
     Indication: Product used for unknown indication
     Dosage: UNK
     Dates: end: 20220831

REACTIONS (5)
  - Toxic encephalopathy [Recovering/Resolving]
  - Seizure [Recovering/Resolving]
  - Urinary tract infection [Recovering/Resolving]
  - Transient ischaemic attack [Unknown]
  - Memory impairment [Unknown]

NARRATIVE: CASE EVENT DATE: 20220831
